FAERS Safety Report 25494597 (Version 1)
Quarter: 2025Q2

REPORT INFORMATION
  Report Type: Spontaneous
  Country: GB (occurrence: GB)
  Receive Date: 20250630
  Receipt Date: 20250630
  Transmission Date: 20250717
  Serious: Yes (Other)
  Sender: MYLAN
  Company Number: GB-MHRA-TPP24911463C6601469YC1750433779637

PATIENT
  Age: 90 Year
  Sex: Female
  Weight: 48 kg

DRUGS (88)
  1. PREGABALIN [Suspect]
     Active Substance: PREGABALIN
     Indication: Ill-defined disorder
     Dosage: 75 MILLIGRAM, BID (EVERY 12 HOURS)
     Dates: start: 20250618
  2. PREGABALIN [Suspect]
     Active Substance: PREGABALIN
     Dosage: 75 MILLIGRAM, BID (EVERY 12 HOURS)
     Route: 065
     Dates: start: 20250618
  3. PREGABALIN [Suspect]
     Active Substance: PREGABALIN
     Dosage: 75 MILLIGRAM, BID (EVERY 12 HOURS)
     Route: 065
     Dates: start: 20250618
  4. PREGABALIN [Suspect]
     Active Substance: PREGABALIN
     Dosage: 75 MILLIGRAM, BID (EVERY 12 HOURS)
     Dates: start: 20250618
  5. MENTHOL [Concomitant]
     Active Substance: MENTHOL
     Indication: Ill-defined disorder
     Dosage: UNK, QD (APPLY DAILY)
     Dates: start: 20240725
  6. MENTHOL [Concomitant]
     Active Substance: MENTHOL
     Dosage: UNK, QD (APPLY DAILY)
     Route: 065
     Dates: start: 20240725
  7. MENTHOL [Concomitant]
     Active Substance: MENTHOL
     Dosage: UNK, QD (APPLY DAILY)
     Route: 065
     Dates: start: 20240725
  8. MENTHOL [Concomitant]
     Active Substance: MENTHOL
     Dosage: UNK, QD (APPLY DAILY)
     Dates: start: 20240725
  9. DERMOL [Concomitant]
     Active Substance: BENZALKONIUM CHLORIDE\CHLORHEXIDINE HYDROCHLORIDE\ISOPROPYL MYRISTATE\PARAFFIN
     Indication: Ill-defined disorder
  10. DERMOL [Concomitant]
     Active Substance: BENZALKONIUM CHLORIDE\CHLORHEXIDINE HYDROCHLORIDE\ISOPROPYL MYRISTATE\PARAFFIN
     Route: 065
  11. DERMOL [Concomitant]
     Active Substance: BENZALKONIUM CHLORIDE\CHLORHEXIDINE HYDROCHLORIDE\ISOPROPYL MYRISTATE\PARAFFIN
     Route: 065
  12. DERMOL [Concomitant]
     Active Substance: BENZALKONIUM CHLORIDE\CHLORHEXIDINE HYDROCHLORIDE\ISOPROPYL MYRISTATE\PARAFFIN
  13. DIORALYTE [Concomitant]
     Active Substance: CITRIC ACID MONOHYDRATE\DEXTROSE\POTASSIUM CATION\SODIUM CHLORIDE
     Indication: Ill-defined disorder
     Dates: start: 20250407, end: 20250414
  14. DIORALYTE [Concomitant]
     Active Substance: CITRIC ACID MONOHYDRATE\DEXTROSE\POTASSIUM CATION\SODIUM CHLORIDE
     Route: 065
     Dates: start: 20250407, end: 20250414
  15. DIORALYTE [Concomitant]
     Active Substance: CITRIC ACID MONOHYDRATE\DEXTROSE\POTASSIUM CATION\SODIUM CHLORIDE
     Route: 065
     Dates: start: 20250407, end: 20250414
  16. DIORALYTE [Concomitant]
     Active Substance: CITRIC ACID MONOHYDRATE\DEXTROSE\POTASSIUM CATION\SODIUM CHLORIDE
     Dates: start: 20250407, end: 20250414
  17. TRIMETHOPRIM [Concomitant]
     Active Substance: TRIMETHOPRIM
     Indication: Urinary tract infection
     Dosage: 1 DOSAGE FORM, BID (TAKE ONE TWICE DAILY FOR 3 DAYS, TO TREAT URINE INFECTION)
     Dates: start: 20250618
  18. TRIMETHOPRIM [Concomitant]
     Active Substance: TRIMETHOPRIM
     Dosage: 1 DOSAGE FORM, BID (TAKE ONE TWICE DAILY FOR 3 DAYS, TO TREAT URINE INFECTION)
     Route: 065
     Dates: start: 20250618
  19. TRIMETHOPRIM [Concomitant]
     Active Substance: TRIMETHOPRIM
     Dosage: 1 DOSAGE FORM, BID (TAKE ONE TWICE DAILY FOR 3 DAYS, TO TREAT URINE INFECTION)
     Route: 065
     Dates: start: 20250618
  20. TRIMETHOPRIM [Concomitant]
     Active Substance: TRIMETHOPRIM
     Dosage: 1 DOSAGE FORM, BID (TAKE ONE TWICE DAILY FOR 3 DAYS, TO TREAT URINE INFECTION)
     Dates: start: 20250618
  21. CLARITHROMYCIN [Concomitant]
     Active Substance: CLARITHROMYCIN
     Indication: Infection
     Dosage: 1 DOSAGE FORM, BID (TAKE ONE TABLET TWICE A DAY FOR 5 DAYS, TO TREAT INFECTION)
     Dates: start: 20250603, end: 20250608
  22. CLARITHROMYCIN [Concomitant]
     Active Substance: CLARITHROMYCIN
     Dosage: 1 DOSAGE FORM, BID (TAKE ONE TABLET TWICE A DAY FOR 5 DAYS, TO TREAT INFECTION)
     Route: 065
     Dates: start: 20250603, end: 20250608
  23. CLARITHROMYCIN [Concomitant]
     Active Substance: CLARITHROMYCIN
     Dosage: 1 DOSAGE FORM, BID (TAKE ONE TABLET TWICE A DAY FOR 5 DAYS, TO TREAT INFECTION)
     Route: 065
     Dates: start: 20250603, end: 20250608
  24. CLARITHROMYCIN [Concomitant]
     Active Substance: CLARITHROMYCIN
     Dosage: 1 DOSAGE FORM, BID (TAKE ONE TABLET TWICE A DAY FOR 5 DAYS, TO TREAT INFECTION)
     Dates: start: 20250603, end: 20250608
  25. 3M CAVILON ANTIFUNGAL [Concomitant]
     Active Substance: MICONAZOLE NITRATE
     Indication: Ill-defined disorder
  26. 3M CAVILON ANTIFUNGAL [Concomitant]
     Active Substance: MICONAZOLE NITRATE
     Route: 065
  27. 3M CAVILON ANTIFUNGAL [Concomitant]
     Active Substance: MICONAZOLE NITRATE
     Route: 065
  28. 3M CAVILON ANTIFUNGAL [Concomitant]
     Active Substance: MICONAZOLE NITRATE
  29. Otomize [Concomitant]
     Indication: Ill-defined disorder
     Dosage: 1 DOSAGE FORM, TID (USE ONE SPRAY INTO THE LEFT EAR THRESS TIMES DAI...)
     Dates: start: 20250603, end: 20250610
  30. Otomize [Concomitant]
     Dosage: 1 DOSAGE FORM, TID (USE ONE SPRAY INTO THE LEFT EAR THRESS TIMES DAI...)
     Route: 001
     Dates: start: 20250603, end: 20250610
  31. Otomize [Concomitant]
     Dosage: 1 DOSAGE FORM, TID (USE ONE SPRAY INTO THE LEFT EAR THRESS TIMES DAI...)
     Route: 001
     Dates: start: 20250603, end: 20250610
  32. Otomize [Concomitant]
     Dosage: 1 DOSAGE FORM, TID (USE ONE SPRAY INTO THE LEFT EAR THRESS TIMES DAI...)
     Dates: start: 20250603, end: 20250610
  33. BETNOVATE [Concomitant]
     Active Substance: BETAMETHASONE
     Indication: Ill-defined disorder
  34. BETNOVATE [Concomitant]
     Active Substance: BETAMETHASONE
     Route: 065
  35. BETNOVATE [Concomitant]
     Active Substance: BETAMETHASONE
     Route: 065
  36. BETNOVATE [Concomitant]
     Active Substance: BETAMETHASONE
  37. POLYETHYLENE GLYCOL 3350\POTASSIUM CHLORIDE\SODIUM BICARBONATE\SODIUM [Concomitant]
     Active Substance: POLYETHYLENE GLYCOL 3350\POTASSIUM CHLORIDE\SODIUM BICARBONATE\SODIUM CHLORIDE
     Indication: Ill-defined disorder
  38. POLYETHYLENE GLYCOL 3350\POTASSIUM CHLORIDE\SODIUM BICARBONATE\SODIUM [Concomitant]
     Active Substance: POLYETHYLENE GLYCOL 3350\POTASSIUM CHLORIDE\SODIUM BICARBONATE\SODIUM CHLORIDE
     Route: 065
  39. POLYETHYLENE GLYCOL 3350\POTASSIUM CHLORIDE\SODIUM BICARBONATE\SODIUM [Concomitant]
     Active Substance: POLYETHYLENE GLYCOL 3350\POTASSIUM CHLORIDE\SODIUM BICARBONATE\SODIUM CHLORIDE
     Route: 065
  40. POLYETHYLENE GLYCOL 3350\POTASSIUM CHLORIDE\SODIUM BICARBONATE\SODIUM [Concomitant]
     Active Substance: POLYETHYLENE GLYCOL 3350\POTASSIUM CHLORIDE\SODIUM BICARBONATE\SODIUM CHLORIDE
  41. SENNOSIDES [Concomitant]
     Active Substance: SENNOSIDES
     Indication: Ill-defined disorder
     Dosage: 1 DOSAGE FORM, PM (1 AT NIGHT)
     Dates: start: 20230728, end: 20250407
  42. SENNOSIDES [Concomitant]
     Active Substance: SENNOSIDES
     Dosage: 1 DOSAGE FORM, PM (1 AT NIGHT)
     Route: 065
     Dates: start: 20230728, end: 20250407
  43. SENNOSIDES [Concomitant]
     Active Substance: SENNOSIDES
     Dosage: 1 DOSAGE FORM, PM (1 AT NIGHT)
     Route: 065
     Dates: start: 20230728, end: 20250407
  44. SENNOSIDES [Concomitant]
     Active Substance: SENNOSIDES
     Dosage: 1 DOSAGE FORM, PM (1 AT NIGHT)
     Dates: start: 20230728, end: 20250407
  45. MINERAL OIL\PARAFFIN [Concomitant]
     Active Substance: MINERAL OIL\PARAFFIN
     Indication: Ill-defined disorder
     Dosage: UNK, TID (APPLY THREE TIMES A DAY)
     Dates: start: 20231019
  46. MINERAL OIL\PARAFFIN [Concomitant]
     Active Substance: MINERAL OIL\PARAFFIN
     Dosage: UNK, TID (APPLY THREE TIMES A DAY)
     Route: 065
     Dates: start: 20231019
  47. MINERAL OIL\PARAFFIN [Concomitant]
     Active Substance: MINERAL OIL\PARAFFIN
     Dosage: UNK, TID (APPLY THREE TIMES A DAY)
     Route: 065
     Dates: start: 20231019
  48. MINERAL OIL\PARAFFIN [Concomitant]
     Active Substance: MINERAL OIL\PARAFFIN
     Dosage: UNK, TID (APPLY THREE TIMES A DAY)
     Dates: start: 20231019
  49. OMEPRAZOLE [Concomitant]
     Active Substance: OMEPRAZOLE
     Indication: Ill-defined disorder
     Dosage: 2 DOSAGE FORM, AM (TAKE TWO IN THE MORNING)
     Dates: start: 20231019
  50. OMEPRAZOLE [Concomitant]
     Active Substance: OMEPRAZOLE
     Dosage: 2 DOSAGE FORM, AM (TAKE TWO IN THE MORNING)
     Route: 065
     Dates: start: 20231019
  51. OMEPRAZOLE [Concomitant]
     Active Substance: OMEPRAZOLE
     Dosage: 2 DOSAGE FORM, AM (TAKE TWO IN THE MORNING)
     Route: 065
     Dates: start: 20231019
  52. OMEPRAZOLE [Concomitant]
     Active Substance: OMEPRAZOLE
     Dosage: 2 DOSAGE FORM, AM (TAKE TWO IN THE MORNING)
     Dates: start: 20231019
  53. FERROUS FUMARATE [Concomitant]
     Active Substance: FERROUS FUMARATE
     Indication: Ill-defined disorder
     Dosage: 1 DOSAGE FORM, QD (TAKE ONE A DAY)
     Dates: start: 20231218, end: 20250407
  54. FERROUS FUMARATE [Concomitant]
     Active Substance: FERROUS FUMARATE
     Dosage: 1 DOSAGE FORM, QD (TAKE ONE A DAY)
     Route: 065
     Dates: start: 20231218, end: 20250407
  55. FERROUS FUMARATE [Concomitant]
     Active Substance: FERROUS FUMARATE
     Dosage: 1 DOSAGE FORM, QD (TAKE ONE A DAY)
     Route: 065
     Dates: start: 20231218, end: 20250407
  56. FERROUS FUMARATE [Concomitant]
     Active Substance: FERROUS FUMARATE
     Dosage: 1 DOSAGE FORM, QD (TAKE ONE A DAY)
     Dates: start: 20231218, end: 20250407
  57. PERINDOPRIL ERBUMINE [Concomitant]
     Active Substance: PERINDOPRIL ERBUMINE
     Indication: Ill-defined disorder
  58. PERINDOPRIL ERBUMINE [Concomitant]
     Active Substance: PERINDOPRIL ERBUMINE
     Route: 065
  59. PERINDOPRIL ERBUMINE [Concomitant]
     Active Substance: PERINDOPRIL ERBUMINE
     Route: 065
  60. PERINDOPRIL ERBUMINE [Concomitant]
     Active Substance: PERINDOPRIL ERBUMINE
  61. DICLOFENAC DIETHYLAMINE [Concomitant]
     Active Substance: DICLOFENAC DIETHYLAMINE
     Indication: Ill-defined disorder
     Dosage: UNK, TID (APPLY 3 TIMES/DAY)
     Dates: start: 20240605
  62. DICLOFENAC DIETHYLAMINE [Concomitant]
     Active Substance: DICLOFENAC DIETHYLAMINE
     Dosage: UNK, TID (APPLY 3 TIMES/DAY)
     Route: 065
     Dates: start: 20240605
  63. DICLOFENAC DIETHYLAMINE [Concomitant]
     Active Substance: DICLOFENAC DIETHYLAMINE
     Dosage: UNK, TID (APPLY 3 TIMES/DAY)
     Route: 065
     Dates: start: 20240605
  64. DICLOFENAC DIETHYLAMINE [Concomitant]
     Active Substance: DICLOFENAC DIETHYLAMINE
     Dosage: UNK, TID (APPLY 3 TIMES/DAY)
     Dates: start: 20240605
  65. LORATADINE [Concomitant]
     Active Substance: LORATADINE
     Indication: Ill-defined disorder
     Dosage: 1 DOSAGE FORM, PM (TAKE ONE AT NIGHT)
     Dates: start: 20240731
  66. LORATADINE [Concomitant]
     Active Substance: LORATADINE
     Dosage: 1 DOSAGE FORM, PM (TAKE ONE AT NIGHT)
     Route: 065
     Dates: start: 20240731
  67. LORATADINE [Concomitant]
     Active Substance: LORATADINE
     Dosage: 1 DOSAGE FORM, PM (TAKE ONE AT NIGHT)
     Route: 065
     Dates: start: 20240731
  68. LORATADINE [Concomitant]
     Active Substance: LORATADINE
     Dosage: 1 DOSAGE FORM, PM (TAKE ONE AT NIGHT)
     Dates: start: 20240731
  69. QV [Concomitant]
     Indication: Ill-defined disorder
  70. QV [Concomitant]
     Route: 065
  71. QV [Concomitant]
     Route: 065
  72. QV [Concomitant]
  73. Aproderm [Concomitant]
     Indication: Ill-defined disorder
  74. Aproderm [Concomitant]
     Route: 065
  75. Aproderm [Concomitant]
     Route: 065
  76. Aproderm [Concomitant]
  77. ACETAMINOPHEN [Concomitant]
     Active Substance: ACETAMINOPHEN
     Indication: Ill-defined disorder
     Dosage: 2 DOSAGE FORM, TID (TAKE 2 TABLETS 3 TIMES/DAY AS REQUIRED)
     Dates: start: 20250110
  78. ACETAMINOPHEN [Concomitant]
     Active Substance: ACETAMINOPHEN
     Dosage: 2 DOSAGE FORM, TID (TAKE 2 TABLETS 3 TIMES/DAY AS REQUIRED)
     Route: 065
     Dates: start: 20250110
  79. ACETAMINOPHEN [Concomitant]
     Active Substance: ACETAMINOPHEN
     Dosage: 2 DOSAGE FORM, TID (TAKE 2 TABLETS 3 TIMES/DAY AS REQUIRED)
     Route: 065
     Dates: start: 20250110
  80. ACETAMINOPHEN [Concomitant]
     Active Substance: ACETAMINOPHEN
     Dosage: 2 DOSAGE FORM, TID (TAKE 2 TABLETS 3 TIMES/DAY AS REQUIRED)
     Dates: start: 20250110
  81. DOXAZOSIN [Concomitant]
     Active Substance: DOXAZOSIN MESYLATE
     Indication: Ill-defined disorder
     Dosage: 1 DOSAGE FORM, QD (TAKE ONE DAILY)
     Dates: start: 20250407, end: 20250429
  82. DOXAZOSIN [Concomitant]
     Active Substance: DOXAZOSIN MESYLATE
     Dosage: 1 DOSAGE FORM, QD (TAKE ONE DAILY)
     Route: 065
     Dates: start: 20250407, end: 20250429
  83. DOXAZOSIN [Concomitant]
     Active Substance: DOXAZOSIN MESYLATE
     Dosage: 1 DOSAGE FORM, QD (TAKE ONE DAILY)
     Route: 065
     Dates: start: 20250407, end: 20250429
  84. DOXAZOSIN [Concomitant]
     Active Substance: DOXAZOSIN MESYLATE
     Dosage: 1 DOSAGE FORM, QD (TAKE ONE DAILY)
     Dates: start: 20250407, end: 20250429
  85. Calci d [Concomitant]
     Indication: Ill-defined disorder
     Dosage: 1 DOSAGE FORM, QD (ONE TO BE TAKEN ONCE A DAY)
     Dates: start: 20250312
  86. Calci d [Concomitant]
     Dosage: 1 DOSAGE FORM, QD (ONE TO BE TAKEN ONCE A DAY)
     Route: 065
     Dates: start: 20250312
  87. Calci d [Concomitant]
     Dosage: 1 DOSAGE FORM, QD (ONE TO BE TAKEN ONCE A DAY)
     Route: 065
     Dates: start: 20250312
  88. Calci d [Concomitant]
     Dosage: 1 DOSAGE FORM, QD (ONE TO BE TAKEN ONCE A DAY)
     Dates: start: 20250312

REACTIONS (4)
  - Lip swelling [Recovered/Resolved]
  - Oropharyngeal discomfort [Recovered/Resolved]
  - Vision blurred [Recovered/Resolved]
  - Balance disorder [Recovering/Resolving]

NARRATIVE: CASE EVENT DATE: 20250620
